FAERS Safety Report 8150168 (Version 3)
Quarter: 2018Q3

REPORT INFORMATION
  Report Type: Spontaneous
  Country: US (occurrence: US)
  Receive Date: 20110922
  Receipt Date: 20180817
  Transmission Date: 20181010
  Serious: No
  Sender: FDA-Public Use
  Company Number: US-ASTRAZENECA-2010SE58252

PATIENT
  Age: 54 Year
  Sex: Female
  Weight: 104.3 kg

DRUGS (8)
  1. SEROQUEL [Suspect]
     Active Substance: QUETIAPINE FUMARATE
     Indication: BIPOLAR DISORDER
     Route: 048
     Dates: start: 2009, end: 2010
  2. XANAX [Concomitant]
     Active Substance: ALPRAZOLAM
     Indication: ANXIETY
  3. PERPHENAZINE. [Concomitant]
     Active Substance: PERPHENAZINE
     Indication: BIPOLAR DISORDER
  4. XANAX [Concomitant]
     Active Substance: ALPRAZOLAM
     Indication: PANIC ATTACK
  5. SEROQUEL [Suspect]
     Active Substance: QUETIAPINE FUMARATE
     Indication: BIPOLAR DISORDER
     Route: 048
     Dates: start: 2012, end: 2017
  6. SEROQUEL [Suspect]
     Active Substance: QUETIAPINE FUMARATE
     Indication: BIPOLAR DISORDER
     Route: 048
     Dates: start: 201701
  7. SEROQUEL [Suspect]
     Active Substance: QUETIAPINE FUMARATE
     Indication: BIPOLAR DISORDER
     Dosage: SHE TAKES AN EXTRA 400 MG TABLET EVERY ONCE IN A WHILE
     Route: 048
     Dates: start: 201009
  8. CARBAMAZEPINE. [Concomitant]
     Active Substance: CARBAMAZEPINE
     Indication: MOOD ALTERED

REACTIONS (9)
  - Insomnia [Not Recovered/Not Resolved]
  - Hallucination [Unknown]
  - Extra dose administered [Not Recovered/Not Resolved]
  - Mania [Unknown]
  - Drug ineffective [Not Recovered/Not Resolved]
  - Insurance issue [Not Recovered/Not Resolved]
  - Feeling abnormal [Not Recovered/Not Resolved]
  - Drug dose omission [Not Recovered/Not Resolved]
  - Sleep disorder [Unknown]
